FAERS Safety Report 4903558-9 (Version None)
Quarter: 2006Q1

REPORT INFORMATION
  Report Type: 
  Country: None (occurrence: None)
  Receive Date: 20060208
  Receipt Date: 20060127
  Transmission Date: 20060701
  Serious: Yes (Hospitalization)
  Sender: FDA-Public Use
  Company Number: CH-BRISTOL-MYERS SQUIBB COMPANY-13268214

PATIENT
  Age: 80 Year
  Sex: Female

DRUGS (10)
  1. GLUCOPHAGE [Suspect]
     Indication: DIABETES MELLITUS NON-INSULIN-DEPENDENT
     Route: 048
     Dates: end: 20050924
  2. ASPIRIN [Suspect]
     Route: 048
  3. TAVANIC [Suspect]
     Indication: PNEUMONITIS
     Route: 048
     Dates: start: 20050916, end: 20050924
  4. AMARYL [Suspect]
     Route: 048
     Dates: end: 20050924
  5. DISTRANEURINE [Concomitant]
     Route: 048
  6. TOREM [Concomitant]
     Route: 048
  7. DIGOXIN [Concomitant]
     Route: 048
  8. TOLVIN [Concomitant]
     Route: 048
  9. BERODUAL [Concomitant]
     Route: 055
  10. PULMICORT [Concomitant]
     Route: 055

REACTIONS (2)
  - HYPOGLYCAEMIC COMA [None]
  - RENAL FAILURE [None]
